FAERS Safety Report 11352504 (Version 1)
Quarter: 2015Q3

REPORT INFORMATION
  Report Type: Spontaneous
  Country: US (occurrence: US)
  Receive Date: 20150807
  Receipt Date: 20150807
  Transmission Date: 20151125
  Serious: No
  Sender: FDA-Public Use
  Company Number: US-JNJFOC-20140712833

PATIENT
  Age: 48 Year
  Sex: Female
  Weight: 43.09 kg

DRUGS (3)
  1. MENS ROGAINE EXTRA STRENGTH [Suspect]
     Active Substance: MINOXIDIL
     Indication: ALOPECIA
     Dosage: 1/2 CAPFUL ON TWO DIFFERENT AREAS, ONCE A DAY
     Route: 061
     Dates: end: 20140716
  2. MENS ROGAINE EXTRA STRENGTH [Suspect]
     Active Substance: MINOXIDIL
     Route: 061
  3. BIOTIN [Concomitant]
     Active Substance: BIOTIN
     Indication: ALOPECIA
     Dosage: 1 OR 2 YEARS
     Route: 065

REACTIONS (3)
  - Hair texture abnormal [Not Recovered/Not Resolved]
  - Product use issue [Unknown]
  - Alopecia [Not Recovered/Not Resolved]
